FAERS Safety Report 16622570 (Version 1)
Quarter: 2019Q3

REPORT INFORMATION
  Report Type: Spontaneous
  Country: NL (occurrence: NL)
  Receive Date: 20190724
  Receipt Date: 20190724
  Transmission Date: 20191004
  Serious: Yes (Hospitalization)
  Sender: FDA-Public Use
  Company Number: PHHY2019NL060035

PATIENT
  Age: 50 Year
  Sex: Female

DRUGS (8)
  1. VALPROIC ACID SANDOZ [Suspect]
     Active Substance: VALPROIC ACID
     Indication: MIGRAINE
     Dosage: UNK
     Route: 065
  2. TOPIRAMATE. [Suspect]
     Active Substance: TOPIRAMATE
     Indication: MIGRAINE
     Dosage: UNK
     Route: 065
  3. CANDESARTAN SANDOZ [Suspect]
     Active Substance: CANDESARTAN
     Indication: MIGRAINE
     Dosage: 4 MG, QD (4 MILLIGRAM DAILY)
     Route: 065
  4. CANDESARTAN SANDOZ [Suspect]
     Active Substance: CANDESARTAN
     Dosage: 12 MG, QD (12 MILLIGRAM DAILY)
     Route: 065
  5. BISOPROLOL [Suspect]
     Active Substance: BISOPROLOL
     Indication: MIGRAINE
     Dosage: UNK (LOW DOSE)
     Route: 065
  6. BOTOX [Suspect]
     Active Substance: ONABOTULINUMTOXINA
     Indication: MIGRAINE
     Dosage: 12 MG, QD
     Route: 065
  7. PROPRANOLOL [Suspect]
     Active Substance: PROPRANOLOL HYDROCHLORIDE
     Indication: MIGRAINE
     Dosage: UNK (LOW DOSE)
     Route: 065
  8. METOPROLOL. [Suspect]
     Active Substance: METOPROLOL
     Indication: MIGRAINE
     Dosage: UNK (LOW DOSE)
     Route: 065

REACTIONS (6)
  - Drug ineffective [Unknown]
  - Fatigue [Unknown]
  - Adverse event [Unknown]
  - Therapeutic product effect incomplete [Unknown]
  - Palpitations [Unknown]
  - Headache [Unknown]
